FAERS Safety Report 23929949 (Version 1)
Quarter: 2024Q2

REPORT INFORMATION
  Report Type: Spontaneous
  Country: US (occurrence: None)
  Receive Date: 20240601
  Receipt Date: 20240601
  Transmission Date: 20240716
  Serious: No
  Sender: FDA-Public Use
  Company Number: 2024A119155

PATIENT
  Age: 29834 Day
  Sex: Female
  Weight: 106 kg

DRUGS (1)
  1. FARXIGA [Suspect]
     Active Substance: DAPAGLIFLOZIN PROPANEDIOL
     Route: 048

REACTIONS (9)
  - Fall [Unknown]
  - Dizziness [Unknown]
  - Living in residential institution [Unknown]
  - Nasopharyngitis [Unknown]
  - Abnormal sensation in eye [Unknown]
  - Musculoskeletal stiffness [Unknown]
  - Obesity [Unknown]
  - Gout [Unknown]
  - Off label use [Unknown]

NARRATIVE: CASE EVENT DATE: 20240428
